FAERS Safety Report 4869344-3 (Version None)
Quarter: 2005Q4

REPORT INFORMATION
  Report Type: 
  Country: None (occurrence: None)
  Receive Date: 20051230
  Receipt Date: 20040922
  Transmission Date: 20060501
  Serious: Yes (Death, Life-Threatening)
  Sender: FDA-Public Use
  Company Number: 200412972JP

PATIENT
  Age: 67 Year
  Sex: Female
  Weight: 53 kg

DRUGS (5)
  1. ARAVA [Suspect]
     Indication: RHEUMATOID ARTHRITIS
     Route: 048
     Dates: start: 20040123, end: 20040125
  2. ARAVA [Suspect]
     Route: 048
     Dates: start: 20040126, end: 20040219
  3. ARAVA [Suspect]
     Dosage: DOSE: 20 MG/WEEK
     Route: 048
     Dates: start: 20040220, end: 20040402
  4. PREDONINE [Concomitant]
     Indication: RHEUMATOID ARTHRITIS
     Route: 048
     Dates: start: 20010326, end: 20040304
  5. PREDONINE [Concomitant]
     Route: 048
     Dates: start: 20040305, end: 20040924

REACTIONS (3)
  - ACUTE RESPIRATORY DISTRESS SYNDROME [None]
  - DEATH [None]
  - GENERAL PHYSICAL HEALTH DETERIORATION [None]
